FAERS Safety Report 15289188 (Version 1)
Quarter: 2018Q3

REPORT INFORMATION
  Report Type: Spontaneous
  Country: DE (occurrence: DE)
  Receive Date: 20180817
  Receipt Date: 20180817
  Transmission Date: 20181010
  Serious: Yes (Hospitalization)
  Sender: FDA-Public Use
  Company Number: DE-TEVA-2018-DE-942074

PATIENT
  Age: 61 Year
  Sex: Female
  Weight: 58 kg

DRUGS (11)
  1. NOVALGIN (METAMIZOLE SODIUM) [Concomitant]
     Active Substance: METAMIZOLE SODIUM
     Dates: end: 20180403
  2. NALOXON [Concomitant]
     Active Substance: NALOXONE HYDROCHLORIDE
     Indication: SPINAL OPERATION
     Dates: end: 20180314
  3. SERTRALIN RATIOPHARM [Suspect]
     Active Substance: SERTRALINE HYDROCHLORIDE
     Indication: DEPRESSION
     Route: 048
     Dates: start: 20180307, end: 20180507
  4. DEKRISTOL [Concomitant]
     Active Substance: CHOLECALCIFEROL
     Dosage: 500 IU (INTERNATIONAL UNIT) DAILY;
     Dates: start: 20180608
  5. OXYCODON [Concomitant]
     Active Substance: OXYCODONE
     Indication: SPINAL OPERATION
     Dates: end: 20180314
  6. ZYPREXA [Suspect]
     Active Substance: OLANZAPINE
     Indication: DELIRIUM
     Route: 048
     Dates: start: 20180306, end: 20180416
  7. NOVALGIN (METAMIZOLE SODIUM) [Concomitant]
     Active Substance: METAMIZOLE SODIUM
     Indication: SPINAL OPERATION
     Dates: end: 20180412
  8. KYTTA?SEDATIVUM [Concomitant]
     Dates: start: 20180306, end: 20180606
  9. MILNANEURAX [Suspect]
     Active Substance: MILNACIPRAN HYDROCHLORIDE
     Indication: DEPRESSION
     Route: 048
     Dates: start: 20180509, end: 20180603
  10. MAGNESIUM [Concomitant]
     Active Substance: MAGNESIUM
     Dosage: 5 MILLIMOL DAILY;
  11. LORAZEPAM. [Concomitant]
     Active Substance: LORAZEPAM
     Dates: start: 20180307, end: 20180419

REACTIONS (1)
  - Drug-induced liver injury [Recovering/Resolving]

NARRATIVE: CASE EVENT DATE: 20180412
